FAERS Safety Report 11074958 (Version 1)
Quarter: 2015Q2

REPORT INFORMATION
  Report Type: Spontaneous
  Country: US (occurrence: None)
  Receive Date: 20150428
  Receipt Date: 20150428
  Transmission Date: 20150821
  Serious: Yes (Other)
  Sender: FDA-Public Use
  Company Number: None

PATIENT
  Age: 67 Year
  Sex: Female
  Weight: 86.18 kg

DRUGS (9)
  1. CALCIUM 600 + D3 [Concomitant]
  2. TYLENOL [Concomitant]
     Active Substance: ACETAMINOPHEN
  3. GABAPENTIN. [Concomitant]
     Active Substance: GABAPENTIN
  4. NIACIN. [Concomitant]
     Active Substance: NIACIN
  5. DULOXETINE [Suspect]
     Active Substance: DULOXETINE
     Indication: FIBROMYALGIA
     Route: 048
     Dates: start: 20140201, end: 20150219
  6. MAXZIDE [Concomitant]
     Active Substance: HYDROCHLOROTHIAZIDE\TRIAMTERENE
  7. ESTRACE (ESTRADIOL) [Concomitant]
  8. RED YEAST RICE [Concomitant]
     Active Substance: DIETARY SUPPLEMENT
  9. MULTIVITAMIN [Concomitant]
     Active Substance: VITAMINS

REACTIONS (14)
  - Chills [None]
  - Fatigue [None]
  - Emotional disorder [None]
  - Nausea [None]
  - Dizziness [None]
  - Insomnia [None]
  - Tremor [None]
  - Faeces pale [None]
  - Agitation [None]
  - Chest discomfort [None]
  - Night sweats [None]
  - Cough [None]
  - Headache [None]
  - Restless legs syndrome [None]

NARRATIVE: CASE EVENT DATE: 20150218
